FAERS Safety Report 6035966-X (Version None)
Quarter: 2009Q1

REPORT INFORMATION
  Report Type: 
  Country: None (occurrence: None)
  Receive Date: 20090113
  Receipt Date: 20090105
  Transmission Date: 20090719
  Serious: Yes (Death)
  Sender: FDA-Public Use
  Company Number: US-MERCK-0901USA00926

PATIENT
  Age: 43 Year
  Sex: Male

DRUGS (8)
  1. PRINIVIL [Suspect]
     Route: 048
  2. ELAVIL [Suspect]
     Route: 048
  3. MORPHINE [Suspect]
     Route: 048
  4. NAPROXEN [Suspect]
     Route: 048
  5. BACLOFEN [Suspect]
     Route: 048
  6. GABAPENTIN [Suspect]
     Route: 048
  7. VENLAFAXINE HYDROCHLORIDE [Suspect]
     Route: 048
  8. ALCOHOL [Suspect]
     Route: 048

REACTIONS (2)
  - COMPLETED SUICIDE [None]
  - OVERDOSE [None]
